FAERS Safety Report 12477190 (Version 1)
Quarter: 2016Q2

REPORT INFORMATION
  Report Type: Spontaneous
  Country: CA (occurrence: CA)
  Receive Date: 20160617
  Receipt Date: 20160617
  Transmission Date: 20160815
  Serious: Yes (Other)
  Sender: FDA-Public Use
  Company Number: CA-TEVA-668710USA

PATIENT
  Age: 20 Year
  Sex: Female
  Weight: 49.94 kg

DRUGS (1)
  1. PLAN B [Suspect]
     Active Substance: LEVONORGESTREL
     Indication: POST COITAL CONTRACEPTION
     Dosage: ONE PILL
     Dates: start: 20160603

REACTIONS (2)
  - Haemorrhage [Unknown]
  - Menstruation delayed [Unknown]
